FAERS Safety Report 7588473-7 (Version None)
Quarter: 2011Q3

REPORT INFORMATION
  Report Type: 
  Country: None (occurrence: None)
  Receive Date: 20110705
  Receipt Date: 20110628
  Transmission Date: 20111222
  Serious: Yes (Life-Threatening, Hospitalization)
  Sender: FDA-Public Use
  Company Number: DK-PFIZER INC-2011144575

PATIENT
  Age: 69 Year
  Sex: Male
  Weight: 55 kg

DRUGS (3)
  1. ATORVASTATIN CALCIUM [Suspect]
     Dosage: 20 MG, 1X/DAY
     Route: 048
     Dates: start: 20090304, end: 20110615
  2. CORODIL [Concomitant]
     Indication: HYPERTENSION
     Dosage: UNK
     Dates: start: 20071001
  3. MAGNYL ^SAD^ [Concomitant]
     Indication: THROMBOSIS PROPHYLAXIS
     Dosage: UNK
     Dates: start: 20071001

REACTIONS (1)
  - PANCREATITIS ACUTE [None]
